FAERS Safety Report 9459334 (Version 2)
Quarter: 2013Q3

REPORT INFORMATION
  Report Type: Report from Study
  Country: US (occurrence: US)
  Receive Date: 20130815
  Receipt Date: 20130821
  Transmission Date: 20140515
  Serious: Yes (Hospitalization)
  Sender: FDA-Public Use
  Company Number: US-ROCHE-1262143

PATIENT
  Age: 51 Year
  Sex: Female

DRUGS (2)
  1. LUCENTIS [Suspect]
     Indication: DIABETIC RETINAL OEDEMA
     Route: 065
  2. BEVACIZUMAB [Suspect]
     Indication: MACULAR OEDEMA
     Dosage: AS NEEDED
     Route: 065
     Dates: start: 20130311, end: 20130429

REACTIONS (1)
  - Cardiac failure congestive [Recovered/Resolved]
